FAERS Safety Report 8005043-7 (Version None)
Quarter: 2011Q4

REPORT INFORMATION
  Report Type: 
  Country: None (occurrence: None)
  Receive Date: 20111223
  Receipt Date: 20111214
  Transmission Date: 20120403
  Serious: Yes (Other)
  Sender: FDA-Public Use
  Company Number: CN-PFIZER INC-2011304948

PATIENT
  Age: 58 Year
  Sex: Male

DRUGS (1)
  1. METHYLPREDNISOLONE [Suspect]
     Indication: RENAL TRANSPLANT
     Dosage: 0.5G, 1X/DAY
     Route: 041

REACTIONS (6)
  - PERSECUTORY DELUSION [None]
  - HALLUCINATION, AUDITORY [None]
  - HALLUCINATION, VISUAL [None]
  - DELIRIUM [None]
  - RESTLESSNESS [None]
  - CONFUSIONAL STATE [None]
